FAERS Safety Report 7520831-9 (Version None)
Quarter: 2011Q2

REPORT INFORMATION
  Report Type: 
  Country: None (occurrence: None)
  Receive Date: 20110603
  Receipt Date: 20071212
  Transmission Date: 20111010
  Serious: Yes (Other)
  Sender: FDA-Public Use
  Company Number: US-BAYER-US-2006-018363

PATIENT
  Age: 62 Year
  Sex: Female
  Weight: 65.8 kg

DRUGS (14)
  1. ESTRADERM [Suspect]
     Indication: HORMONE REPLACEMENT THERAPY
     Dosage: 0.05
     Route: 062
     Dates: start: 19950915
  2. CLIMARA [Suspect]
     Indication: HORMONE REPLACEMENT THERAPY
     Dosage: .05 MG/D, CONT
     Route: 062
     Dates: start: 19960101, end: 20021201
  3. MEDROXYPROGESTERONE ACETATE [Suspect]
     Dosage: 5 MG, UNK
     Dates: start: 19860101, end: 20021201
  4. DIAZEPAM [Concomitant]
  5. MENEST [Suspect]
     Indication: HORMONE REPLACEMENT THERAPY
     Dosage: .625 MG, UNK
     Dates: start: 19940101, end: 19950101
  6. COMBIPATCH [Suspect]
     Indication: HORMONE REPLACEMENT THERAPY
     Dates: start: 19990413
  7. EFUDEX [Concomitant]
  8. PREMARIN [Suspect]
     Indication: HORMONE REPLACEMENT THERAPY
     Dosage: UNK, UNK
     Dates: start: 19860101, end: 19930101
  9. TOBRADEX [Concomitant]
  10. MEDROL [Concomitant]
     Indication: ADVERSE DRUG REACTION
     Route: 048
     Dates: start: 19960314
  11. FLOXIN [Concomitant]
  12. IMIPRAMINE [Concomitant]
  13. MEDROXYPROGESTERONE ACETATE [Suspect]
     Indication: HORMONE REPLACEMENT THERAPY
     Dosage: DAILY DOSE 2.5 MG
     Dates: start: 19860101, end: 20021201
  14. IBUPROFEN [Concomitant]
     Route: 048

REACTIONS (5)
  - BONE DENSITY DECREASED [None]
  - BREAST CANCER FEMALE [None]
  - ARTERIOSCLEROSIS [None]
  - FIBROCYSTIC BREAST DISEASE [None]
  - UTERINE LEIOMYOMA [None]
